FAERS Safety Report 5792870-X (Version None)
Quarter: 2008Q2

REPORT INFORMATION
  Report Type: 
  Country: None (occurrence: None)
  Receive Date: 20080627
  Receipt Date: 20080624
  Transmission Date: 20081010
  Serious: Yes (Hospitalization, Other)
  Sender: FDA-Public Use
  Company Number: CZ-BRISTOL-MYERS SQUIBB COMPANY-14238414

PATIENT
  Age: 48 Year
  Sex: Male

DRUGS (2)
  1. CISPLATIN [Suspect]
     Indication: CARCINOID TUMOUR
     Dates: start: 20020201, end: 20020201
  2. ETOPOSIDE [Suspect]
     Indication: CARCINOID TUMOUR
     Dates: start: 20020201, end: 20020201

REACTIONS (5)
  - DRUG TOXICITY [None]
  - GENERAL PHYSICAL HEALTH DETERIORATION [None]
  - PANCYTOPENIA [None]
  - RENAL FAILURE [None]
  - VISUAL ACUITY REDUCED [None]
